FAERS Safety Report 5853644-4 (Version None)
Quarter: 2008Q3

REPORT INFORMATION
  Report Type: 
  Country: None (occurrence: None)
  Receive Date: 20080822
  Receipt Date: 20080819
  Transmission Date: 20090109
  Serious: Yes (Other)
  Sender: FDA-Public Use
  Company Number: JP-AVENTIS-200812640JP

PATIENT

DRUGS (1)
  1. LASIX [Suspect]
     Indication: OEDEMA

REACTIONS (2)
  - INTERNATIONAL NORMALISED RATIO INCREASED [None]
  - VITAMIN K DEFICIENCY [None]
